FAERS Safety Report 7752298-X (Version None)
Quarter: 2011Q3

REPORT INFORMATION
  Report Type: 
  Country: None (occurrence: None)
  Receive Date: 20110915
  Receipt Date: 20110907
  Transmission Date: 20111222
  Serious: Yes (Other)
  Sender: FDA-Public Use
  Company Number: JP-ASTELLAS-2011JP005694

PATIENT
  Sex: Male

DRUGS (3)
  1. PREDNISOLONE [Suspect]
     Dosage: 25 MG, UNKNOWN/D
     Route: 065
     Dates: start: 20110729
  2. PROGRAF [Suspect]
     Indication: INTERSTITIAL LUNG DISEASE
     Dosage: 3 MG, UNKNOWN/D
     Route: 048
     Dates: start: 20110630, end: 20110728
  3. PREDNISOLONE [Suspect]
     Dosage: 30 MG, UNKNOWN/D
     Route: 065
     Dates: start: 20110630, end: 20110728

REACTIONS (3)
  - VISION BLURRED [None]
  - GLAUCOMA [None]
  - OFF LABEL USE [None]
